FAERS Safety Report 7723229-3 (Version None)
Quarter: 2011Q3

REPORT INFORMATION
  Report Type: 
  Country: None (occurrence: None)
  Receive Date: 20110826
  Receipt Date: 20110810
  Transmission Date: 20111222
  Serious: Yes (Other)
  Sender: FDA-Public Use
  Company Number: GER/UKI/11/0020663

PATIENT
  Sex: Female
  Weight: 31.7518 kg

DRUGS (15)
  1. FEMARA [Suspect]
     Indication: BREAST CANCER
     Dosage: 2.5 MG, ORAL
     Route: 048
     Dates: start: 20100416
  2. ADCAL-D3 [Concomitant]
  3. NITROGLYCERIN [Concomitant]
  4. PRAVASTATIN [Concomitant]
  5. AIROMIR [Concomitant]
  6. VALSARTAN [Concomitant]
  7. NOVOMIX [Concomitant]
  8. WARFARIN SODIUM [Concomitant]
  9. BISOPROLOL FUMARATE [Concomitant]
  10. FUROSEMIDE [Concomitant]
  11. ALENDRONIC ACID [Suspect]
     Indication: PRODUCT USED FOR UNKNOWN INDICATION
     Dosage: 70 MG
  12. DIGOXIN [Concomitant]
  13. LACTULOSE [Concomitant]
  14. SPIRONOLACTONE [Concomitant]
  15. ACETAMINOPHEN AND CODEINE PHOSPHATE [Concomitant]

REACTIONS (11)
  - CARDIAC FAILURE [None]
  - LIVER DISORDER [None]
  - OEDEMA PERIPHERAL [None]
  - RENAL DISORDER [None]
  - AMNESIA [None]
  - MACULAR DEGENERATION [None]
  - BLEPHARITIS [None]
  - MUSCULOSKELETAL PAIN [None]
  - IRRITABILITY [None]
  - NIGHT SWEATS [None]
  - ARTHRALGIA [None]
